FAERS Safety Report 8073822-6 (Version None)
Quarter: 2012Q1

REPORT INFORMATION
  Report Type: 
  Country: None (occurrence: None)
  Receive Date: 20120126
  Receipt Date: 20120117
  Transmission Date: 20120608
  Serious: Yes (Hospitalization)
  Sender: FDA-Public Use
  Company Number: GB-TEVA-318550ISR

PATIENT
  Sex: Male

DRUGS (13)
  1. ACETAMINOPHEN [Concomitant]
     Indication: PROSTATE CANCER METASTATIC
  2. NAPROXEN [Concomitant]
     Indication: PROSTATE CANCER METASTATIC
  3. NOVOLOG MIX 70/30 [Concomitant]
     Indication: DIABETES MELLITUS
  4. AMLODIPINE [Concomitant]
     Indication: MYOCARDIAL ISCHAEMIA
     Dosage: 5 MILLIGRAM;
  5. PANADEINE CO [Concomitant]
     Indication: PROSTATE CANCER METASTATIC
  6. ATORVASTATIN [Concomitant]
     Indication: MYOCARDIAL ISCHAEMIA
  7. OMEPRAZOLE [Concomitant]
     Indication: PROPHYLAXIS
     Dosage: 20 MILLIGRAM;
  8. ABIRATERONE (ABIRATERONE ACETATE) [Suspect]
     Indication: PROSTATE CANCER METASTATIC
     Dates: start: 20110506
  9. RAMIPRIL [Concomitant]
     Indication: MYOCARDIAL ISCHAEMIA
     Dosage: 10 MILLIGRAM;
  10. PREDNISOLONE [Suspect]
     Indication: PROSTATE CANCER METASTATIC
     Dosage: 10 MILLIGRAM;
  11. ATORVASTATIN [Concomitant]
     Indication: BLOOD CHOLESTEROL
     Dosage: 40 MILLIGRAM;
  12. METFORMIN HCL [Concomitant]
     Indication: DIABETES MELLITUS
     Dosage: 2250 MILLIGRAM;
  13. ZOLADEX [Concomitant]
     Indication: PROSTATE CANCER METASTATIC

REACTIONS (2)
  - PAIN [None]
  - RIB FRACTURE [None]
